FAERS Safety Report 16880282 (Version 1)
Quarter: 2019Q4

REPORT INFORMATION
  Report Type: Spontaneous
  Country: US (occurrence: US)
  Receive Date: 20190807
  Receipt Date: 20190807
  Transmission Date: 20200122
  Serious: Yes (Hospitalization)
  Sender: FDA-Public Use
  Company Number: None

PATIENT
  Age: 48 Year
  Sex: Female

DRUGS (36)
  1. FIORICET [Concomitant]
     Active Substance: ACETAMINOPHEN\BUTALBITAL\CAFFEINE
  2. IPRATROPIUM [Concomitant]
     Active Substance: IPRATROPIUM
  3. LEXAPRO [Concomitant]
     Active Substance: ESCITALOPRAM OXALATE
  4. LOTRISONE [Concomitant]
     Active Substance: BETAMETHASONE DIPROPIONATE\CLOTRIMAZOLE
  5. PROAIR HFA [Concomitant]
     Active Substance: ALBUTEROL SULFATE
  6. PROMETHAZINE [Concomitant]
     Active Substance: PROMETHAZINE HYDROCHLORIDE
  7. XOLAIR [Suspect]
     Active Substance: OMALIZUMAB
     Indication: ASTHMA
     Route: 058
     Dates: start: 20151118
  8. AZELASTINE. [Concomitant]
     Active Substance: AZELASTINE HYDROCHLORIDE
  9. LEVOTHYROXINE. [Concomitant]
     Active Substance: LEVOTHYROXINE
  10. TESSALON PEARLS [Concomitant]
  11. PATADAY [Concomitant]
     Active Substance: OLOPATADINE HYDROCHLORIDE
  12. VIBERZIM [Concomitant]
  13. ASPIRIN. [Concomitant]
     Active Substance: ASPIRIN
  14. SINGULAIR [Concomitant]
     Active Substance: MONTELUKAST SODIUM
  15. ALLEGRA [Concomitant]
     Active Substance: FEXOFENADINE HYDROCHLORIDE
  16. EPIPEN [Concomitant]
     Active Substance: EPINEPHRINE
  17. HYDRALAZINE [Concomitant]
     Active Substance: HYDRALAZINE HYDROCHLORIDE
  18. MAG OXIDE [Concomitant]
     Active Substance: MAGNESIUM OXIDE
  19. PREVACID [Concomitant]
     Active Substance: LANSOPRAZOLE
  20. RANITIDINE. [Concomitant]
     Active Substance: RANITIDINE
  21. ALBUTEROL. [Concomitant]
     Active Substance: ALBUTEROL
  22. CIPRODEX [Concomitant]
     Active Substance: CIPROFLOXACIN HYDROCHLORIDE\DEXAMETHASONE
  23. CLONAZEPAM. [Concomitant]
     Active Substance: CLONAZEPAM
  24. DEPAKOTE [Concomitant]
     Active Substance: DIVALPROEX SODIUM
  25. LEVSIN [Concomitant]
     Active Substance: HYOSCYAMINE SULFATE
  26. SPIRIVA [Concomitant]
     Active Substance: TIOTROPIUM BROMIDE MONOHYDRATE
  27. SYMBICORT [Concomitant]
     Active Substance: BUDESONIDE\FORMOTEROL FUMARATE DIHYDRATE
  28. TROKENDI [Concomitant]
     Active Substance: TOPIRAMATE
  29. HUMALOG [Concomitant]
     Active Substance: INSULIN LISPRO
  30. ZANTAC [Concomitant]
     Active Substance: RANITIDINE HYDROCHLORIDE
  31. AVAPRO [Concomitant]
     Active Substance: IRBESARTAN
  32. DEXILANT [Concomitant]
     Active Substance: DEXLANSOPRAZOLE
  33. GLUCAGON. [Concomitant]
     Active Substance: GLUCAGON
  34. LYRICA [Concomitant]
     Active Substance: PREGABALIN
  35. PENLAC SOLUTION [Concomitant]
  36. PRAVACHOL [Concomitant]
     Active Substance: PRAVASTATIN SODIUM

REACTIONS (4)
  - Dehydration [None]
  - Infusion site haemorrhage [None]
  - Dizziness [None]
  - Erythrasma [None]

NARRATIVE: CASE EVENT DATE: 20190801
